FAERS Safety Report 6035665-4 (Version None)
Quarter: 2009Q1

REPORT INFORMATION
  Report Type: 
  Country: None (occurrence: None)
  Receive Date: 20090113
  Receipt Date: 20090108
  Transmission Date: 20090719
  Serious: Yes (Death, Hospitalization)
  Sender: FDA-Public Use
  Company Number: PHHY2007MX00453

PATIENT
  Sex: Male

DRUGS (1)
  1. DIOVAN HCT [Suspect]
     Indication: HYPERTENSION
     Dosage: 1 TABLET PER DAY
     Route: 048
     Dates: end: 20071001

REACTIONS (10)
  - DEATH [None]
  - DISCOMFORT [None]
  - DIVERTICULAR PERFORATION [None]
  - DIVERTICULUM [None]
  - INFLAMMATION [None]
  - INGUINAL HERNIA [None]
  - LUNG DISORDER [None]
  - PAIN IN EXTREMITY [None]
  - RECTAL HAEMORRHAGE [None]
  - RENAL DISORDER [None]
